FAERS Safety Report 5051355-9 (Version None)
Quarter: 2006Q3

REPORT INFORMATION
  Report Type: 
  Country: None (occurrence: None)
  Receive Date: 20060710
  Receipt Date: 20060629
  Transmission Date: 20061208
  Serious: Yes (Other)
  Sender: FDA-Public Use
  Company Number: 2006-06-2215

PATIENT
  Sex: Female
  Weight: 86.1834 kg

DRUGS (2)
  1. PEG-INTRON [Suspect]
     Indication: HEPATITIS C
  2. RIBAVIRIN [Suspect]
     Indication: HEPATITIS C
     Dosage: ORAL

REACTIONS (5)
  - DEHYDRATION [None]
  - DIZZINESS [None]
  - HEADACHE [None]
  - VOMITING [None]
  - WEIGHT DECREASED [None]
